FAERS Safety Report 8236601-2 (Version None)
Quarter: 2012Q1

REPORT INFORMATION
  Report Type: 
  Country: None (occurrence: None)
  Receive Date: 20120326
  Receipt Date: 20120326
  Transmission Date: 20120608
  Serious: Yes (Disabling, Other)
  Sender: FDA-Public Use
  Company Number: None

PATIENT
  Sex: Female
  Weight: 74.8435 kg

DRUGS (1)
  1. LEVAQUIN [Suspect]
     Indication: SINUSITIS
     Dosage: 750 2 WKS 5-INTRAVENOUS Q-ORAL
     Route: 048
     Dates: start: 20081023

REACTIONS (13)
  - VENTRICULAR EXTRASYSTOLES [None]
  - TENDONITIS [None]
  - FEELING ABNORMAL [None]
  - MUSCULAR WEAKNESS [None]
  - MYALGIA [None]
  - PHOTOPHOBIA [None]
  - AMNESIA [None]
  - DEPRESSION [None]
  - PAIN [None]
  - ANXIETY [None]
  - VISUAL IMPAIRMENT [None]
  - HEADACHE [None]
  - SUPRAVENTRICULAR TACHYCARDIA [None]
